FAERS Safety Report 5372728-0 (Version None)
Quarter: 2007Q2

REPORT INFORMATION
  Report Type: 
  Country: None (occurrence: None)
  Receive Date: 20070619
  Receipt Date: 20060830
  Transmission Date: 20071010
  Serious: Yes (Hospitalization, Disabling)
  Sender: FDA-Public Use
  Company Number: WAES 0504USA01743

PATIENT
  Age: 80 Year
  Sex: Female

DRUGS (10)
  1. COZAAR [Suspect]
     Indication: HYPERTENSION
     Dosage: 50 MG/DAILY/PO
     Route: 048
     Dates: start: 20010101, end: 20060201
  2. DILANTIN KAPSEAL [Concomitant]
  3. NORVASC [Concomitant]
  4. PLAVIX [Concomitant]
  5. SYNTHROID [Concomitant]
  6. TOPROL-XL [Concomitant]
  7. ZOCOR [Concomitant]
  8. ZYRTEC [Concomitant]
  9. NITROGLYCERIN [Concomitant]
  10. VITAMINS (UNSPECIFIED) [Concomitant]

REACTIONS (2)
  - MEMORY IMPAIRMENT [None]
  - MYOCARDIAL INFARCTION [None]
